FAERS Safety Report 9285430 (Version 2)
Quarter: 2013Q2

REPORT INFORMATION
  Report Type: Spontaneous
  Country: DE (occurrence: None)
  Receive Date: 20130506
  Receipt Date: 20130528
  Transmission Date: 20140414
  Serious: Yes (Disabling)
  Sender: FDA-Public Use
  Company Number: 1693370

PATIENT
  Age: 52 Year
  Sex: Female

DRUGS (4)
  1. DOCETAXEL [Suspect]
     Indication: BREAST CANCER
     Dosage: CYCLICAL
  2. FLUOROURACIL [Concomitant]
  3. (EPIRUBICIN) [Concomitant]
  4. (CYCLOPHOSPHAMIDE ) [Concomitant]

REACTIONS (2)
  - Skin discolouration [None]
  - Scleroderma [None]
